FAERS Safety Report 12215446 (Version 1)
Quarter: 2016Q1

REPORT INFORMATION
  Report Type: Spontaneous
  Country: US (occurrence: US)
  Receive Date: 20160328
  Receipt Date: 20160328
  Transmission Date: 20160526
  Serious: Yes (Death, Hospitalization)
  Sender: FDA-Public Use
  Company Number: US-IPCA LABORATORIES LIMITED-IPC201603-000337

PATIENT
  Age: 56 Year
  Sex: Male

DRUGS (1)
  1. ALLOPURINOL. [Suspect]
     Active Substance: ALLOPURINOL
     Indication: PROPHYLAXIS

REACTIONS (5)
  - Cardiomegaly [Fatal]
  - Drug reaction with eosinophilia and systemic symptoms [Not Recovered/Not Resolved]
  - Hypereosinophilic syndrome [Fatal]
  - Pulmonary oedema [Not Recovered/Not Resolved]
  - Pulseless electrical activity [Fatal]
